FAERS Safety Report 17642062 (Version 3)
Quarter: 2021Q1

REPORT INFORMATION
  Report Type: Spontaneous
  Country: CA (occurrence: CA)
  Receive Date: 20200407
  Receipt Date: 20210323
  Transmission Date: 20210419
  Serious: Yes (Other)
  Sender: FDA-Public Use
  Company Number: CA-PFIZER INC-2018491917

PATIENT
  Age: 51 Year
  Sex: Female
  Weight: 84 kg

DRUGS (12)
  1. IBRANCE [Suspect]
     Active Substance: PALBOCICLIB
     Indication: BREAST CANCER METASTATIC
     Dosage: 125 MG, CYCLIC (DAILY, 21 DAYS ON AND 1 WEEK OFF)
     Route: 048
     Dates: start: 20181003
  2. FEMARA [Concomitant]
     Active Substance: LETROZOLE
     Indication: PALLIATIVE CARE
     Dosage: UNK, DAILY
     Route: 048
     Dates: start: 201809
  3. OXYCODONE [Concomitant]
     Active Substance: OXYCODONE
     Dosage: 5 MG, UNK
  4. XARELTO [Concomitant]
     Active Substance: RIVAROXABAN
     Dosage: UNK
  5. OXYCODONE [Concomitant]
     Active Substance: OXYCODONE
     Dosage: 0.5 DF, AS NEEDED
     Route: 048
  6. ZOLADEX [Concomitant]
     Active Substance: GOSERELIN ACETATE
     Dosage: 3.6 MG, MONTHLY
     Route: 058
     Dates: start: 201807
  7. ZOMETA [Concomitant]
     Active Substance: ZOLEDRONIC ACID
     Indication: METASTASES TO BONE
     Dosage: UNK, MONTHLY
     Route: 042
     Dates: start: 201809
  8. RIVAROXABAN [Concomitant]
     Active Substance: RIVAROXABAN
     Indication: ANTICOAGULANT THERAPY
     Dosage: UNK
  9. ZOMETA [Concomitant]
     Active Substance: ZOLEDRONIC ACID
     Dosage: UNK, EVERY 3 MONTHS
     Route: 042
     Dates: start: 201901
  10. OXYNEO [Concomitant]
     Active Substance: OXYCODONE
     Dosage: 20 MG, UNK
  11. OXYNEO [Concomitant]
     Active Substance: OXYCODONE
     Dosage: 15 MG, 2X/DAY
  12. LETROZOLE. [Concomitant]
     Active Substance: LETROZOLE
     Dosage: UNK

REACTIONS (30)
  - Mood swings [Unknown]
  - Oedema peripheral [Unknown]
  - Osteoarthritis [Unknown]
  - Chest injury [Unknown]
  - Fatigue [Unknown]
  - Back pain [Unknown]
  - Nasopharyngitis [Unknown]
  - Pathological fracture [Unknown]
  - Dyspnoea exertional [Not Recovered/Not Resolved]
  - Paraesthesia [Not Recovered/Not Resolved]
  - Lung opacity [Unknown]
  - Hypoaesthesia [Unknown]
  - Diabetic neuropathy [Not Recovered/Not Resolved]
  - Pelvic pain [Unknown]
  - Bone lesion [Unknown]
  - Dyspnoea [Unknown]
  - Spinal disorder [Unknown]
  - Carbohydrate antigen 15-3 increased [Unknown]
  - Hypoaesthesia [Not Recovered/Not Resolved]
  - Productive cough [Unknown]
  - Blood glucose increased [Unknown]
  - Paraesthesia [Unknown]
  - Asthenia [Unknown]
  - Arthralgia [Recovering/Resolving]
  - Oropharyngeal pain [Unknown]
  - Decreased appetite [Unknown]
  - Sputum discoloured [Recovering/Resolving]
  - Weight decreased [Recovered/Resolved]
  - Bone pain [Not Recovered/Not Resolved]
  - Headache [Unknown]

NARRATIVE: CASE EVENT DATE: 20190717
